FAERS Safety Report 8396095-3 (Version None)
Quarter: 2012Q2

REPORT INFORMATION
  Report Type: 
  Country: None (occurrence: None)
  Receive Date: 20120530
  Receipt Date: 20120521
  Transmission Date: 20120825
  Serious: Yes (Other)
  Sender: FDA-Public Use
  Company Number: US-ROCHE-784238

PATIENT
  Sex: Male
  Weight: 90.8 kg

DRUGS (4)
  1. ACCUTANE [Suspect]
     Indication: ACNE CYSTIC
     Route: 065
     Dates: start: 19920901, end: 19930101
  2. SULFAMETHOXAZOLE AND TRIMETHOPRIM [Concomitant]
  3. ACCUTANE [Suspect]
     Route: 065
     Dates: start: 19940101, end: 19950101
  4. BENZAC [Concomitant]

REACTIONS (5)
  - BIPOLAR DISORDER [None]
  - INFLAMMATORY BOWEL DISEASE [None]
  - SUICIDE ATTEMPT [None]
  - SUICIDAL IDEATION [None]
  - COLITIS ULCERATIVE [None]
